FAERS Safety Report 25600494 (Version 1)
Quarter: 2025Q3

REPORT INFORMATION
  Report Type: Report from Study
  Country: US (occurrence: US)
  Receive Date: 20250724
  Receipt Date: 20250724
  Transmission Date: 20251021
  Serious: Yes (Other)
  Sender: ALEXION PHARMACEUTICALS
  Company Number: US-ASTRAZENECA-202506USA026673US

PATIENT
  Age: 37 Year
  Sex: Female

DRUGS (1)
  1. OLAPARIB [Suspect]
     Active Substance: OLAPARIB
     Indication: Breast cancer
     Dosage: 200 MILLIGRAM, BID
     Dates: start: 20250513

REACTIONS (6)
  - Poisoning [Unknown]
  - Anaemia [Unknown]
  - Back pain [Unknown]
  - Alopecia [Unknown]
  - Dyspnoea [Unknown]
  - Abdominal pain upper [Unknown]

NARRATIVE: CASE EVENT DATE: 20250623
